FAERS Safety Report 24034292 (Version 1)
Quarter: 2024Q3

REPORT INFORMATION
  Report Type: Spontaneous
  Country: US (occurrence: US)
  Receive Date: 20240701
  Receipt Date: 20240701
  Transmission Date: 20241016
  Serious: Yes (Hospitalization)
  Sender: MYLAN
  Company Number: US-MYLANLABS-2024M1058128

PATIENT
  Age: 53 Year
  Sex: Female

DRUGS (1)
  1. HEPARIN [Suspect]
     Active Substance: HEPARIN SODIUM
     Indication: Portal vein thrombosis
     Dosage: UNK
     Route: 065

REACTIONS (2)
  - Splenic rupture [Unknown]
  - Haemoperitoneum [Unknown]
